APPROVED DRUG PRODUCT: POTASSIUM CHLORIDE
Active Ingredient: POTASSIUM CHLORIDE
Strength: 20MEQ
Dosage Form/Route: TABLET, EXTENDED RELEASE;ORAL
Application: A212861 | Product #003
Applicant: AMNEAL EU LTD
Approved: May 8, 2020 | RLD: No | RS: No | Type: DISCN